FAERS Safety Report 8432546-3 (Version None)
Quarter: 2012Q2

REPORT INFORMATION
  Report Type: 
  Country: None (occurrence: None)
  Receive Date: 20120613
  Receipt Date: 20120531
  Transmission Date: 20120825
  Serious: Yes (Life-Threatening)
  Sender: FDA-Public Use
  Company Number: JP-GILEAD-2012-0052819

PATIENT
  Sex: Female

DRUGS (7)
  1. ADCIRCA [Concomitant]
     Indication: PULMONARY HYPERTENSION
     Route: 048
     Dates: end: 20110325
  2. ALDACTONE [Concomitant]
     Indication: RIGHT VENTRICULAR FAILURE
     Route: 048
     Dates: end: 20110325
  3. TRICHLORMETHIAZIDE [Concomitant]
     Indication: RIGHT VENTRICULAR FAILURE
     Route: 048
     Dates: end: 20110325
  4. BERAPROST SODIUM [Concomitant]
     Indication: PULMONARY HYPERTENSION
     Route: 048
     Dates: end: 20110325
  5. FUROSEMIDE [Concomitant]
     Indication: RIGHT VENTRICULAR FAILURE
     Route: 048
     Dates: end: 20110325
  6. LANSOPRAZOLE [Concomitant]
     Indication: PROPHYLAXIS AGAINST GASTROINTESTINAL ULCER
     Route: 048
     Dates: end: 20110325
  7. AMBRISENTAN [Suspect]
     Indication: PULMONARY HYPERTENSION
     Dosage: 5 MG, UNK
     Route: 048
     Dates: start: 20110204, end: 20110325

REACTIONS (1)
  - RENAL IMPAIRMENT [None]
